FAERS Safety Report 7559117-5 (Version None)
Quarter: 2011Q2

REPORT INFORMATION
  Report Type: 
  Country: None (occurrence: None)
  Receive Date: 20110613
  Receipt Date: 20110601
  Transmission Date: 20111010
  Serious: Yes (Other)
  Sender: FDA-Public Use
  Company Number: 2011SP015013

PATIENT
  Sex: Male

DRUGS (2)
  1. RIBAVIRIN [Suspect]
     Indication: HEPATITIS C
     Dates: start: 20100421, end: 20110323
  2. PEG-INTRON [Suspect]
     Indication: HEPATITIS C
     Dates: start: 20100421, end: 20110323

REACTIONS (6)
  - NAUSEA [None]
  - GASTROOESOPHAGEAL REFLUX DISEASE [None]
  - WEIGHT DECREASED [None]
  - MUSCLE ATROPHY [None]
  - DECREASED APPETITE [None]
  - DYSGEUSIA [None]
